FAERS Safety Report 4636650-7 (Version None)
Quarter: 2005Q2

REPORT INFORMATION
  Report Type: 
  Country: None (occurrence: None)
  Receive Date: 20050414
  Receipt Date: 20050404
  Transmission Date: 20051028
  Serious: Yes (Disabling)
  Sender: FDA-Public Use
  Company Number: 2005GB00657

PATIENT
  Age: 55 Year
  Sex: Female
  Weight: 70.5 kg

DRUGS (5)
  1. LISINOPRIL [Suspect]
     Indication: HYPERTENSION
     Dosage: DOSE BETWEEN 2.5 MG AND 20 MG
     Dates: start: 20041207, end: 20050224
  2. CO-TENIDONE [Concomitant]
  3. LOFEPRAMINE [Concomitant]
  4. PREMARIN /NEZ/ [Concomitant]
  5. ZOLMITRIPTAN [Concomitant]

REACTIONS (1)
  - MIGRAINE [None]
